FAERS Safety Report 9553597 (Version 1)
Quarter: 2013Q3

REPORT INFORMATION
  Report Type: Spontaneous
  Country: IS (occurrence: None)
  Receive Date: 20130923
  Receipt Date: 20130923
  Transmission Date: 20140515
  Serious: Yes (Other)
  Sender: FDA-Public Use
  Company Number: 2013P1019379

PATIENT
  Sex: 0

DRUGS (1)
  1. AMOXICILLIN + CLAVULANATE POTASSIUM [Suspect]

REACTIONS (1)
  - Pancreatitis acute [None]
